FAERS Safety Report 9181311 (Version 2)
Quarter: 2013Q2

REPORT INFORMATION
  Report Type: Spontaneous
  Country: US (occurrence: US)
  Receive Date: 20130322
  Receipt Date: 20130513
  Transmission Date: 20140414
  Serious: Yes (Hospitalization, Other)
  Sender: FDA-Public Use
  Company Number: US-PFIZER INC-2013092970

PATIENT
  Age: 51 Year
  Sex: Female

DRUGS (3)
  1. CHANTIX [Suspect]
     Dosage: STARTING PACK
     Route: 048
     Dates: start: 20090407
  2. CHANTIX [Suspect]
     Dosage: 1 MG, CONTINUING MONTH PACK
     Route: 048
     Dates: start: 20090504
  3. CHANTIX [Suspect]
     Dosage: UNK
     Route: 048
     Dates: start: 20090509, end: 20090809

REACTIONS (2)
  - Intentional overdose [Recovered/Resolved]
  - Suicide attempt [Recovered/Resolved]
